FAERS Safety Report 8343840-9 (Version None)
Quarter: 2012Q2

REPORT INFORMATION
  Report Type: 
  Country: None (occurrence: None)
  Receive Date: 20120508
  Receipt Date: 20100907
  Transmission Date: 20120825
  Serious: No
  Sender: FDA-Public Use
  Company Number: US-TEVA-2010004423

PATIENT
  Sex: Female
  Weight: 72.64 kg

DRUGS (6)
  1. ALLOPURINOL [Concomitant]
     Dates: start: 20100501, end: 20100701
  2. CRESTOR [Concomitant]
     Indication: BLOOD CHOLESTEROL INCREASED
     Dates: start: 20080101
  3. DIOVAN [Concomitant]
  4. TREANDA [Suspect]
     Indication: B-CELL LYMPHOMA
     Route: 041
     Dates: start: 20100501, end: 20100622
  5. RITUXIMAB [Concomitant]
     Indication: NON-HODGKIN'S LYMPHOMA
     Dates: start: 20030101
  6. SYNTHROID [Concomitant]
     Indication: HYPOTHYROIDISM

REACTIONS (4)
  - FATIGUE [None]
  - DECREASED APPETITE [None]
  - HYPERHIDROSIS [None]
  - ACARODERMATITIS [None]
